FAERS Safety Report 22351085 (Version 36)
Quarter: 2023Q4

REPORT INFORMATION
  Report Type: Report from Study
  Country: KR (occurrence: None)
  Receive Date: 20230522
  Receipt Date: 20231130
  Transmission Date: 20240109
  Serious: Yes (Life-Threatening, Hospitalization, Other)
  Sender: FDA-Public Use
  Company Number: KR-ROCHE-3353195

PATIENT
  Age: 16 Year
  Sex: Male
  Weight: 53.8 kg

DRUGS (238)
  1. GLOFITAMAB [Suspect]
     Active Substance: GLOFITAMAB
     Indication: Non-Hodgkin^s lymphoma metastatic
     Dosage: MOST RECENT DOSE ON 18/MAY/2023, 2.5MG
     Route: 042
     Dates: start: 20230518
  2. GLOFITAMAB [Suspect]
     Active Substance: GLOFITAMAB
     Indication: Peritoneal carcinoma metastatic
  3. OBINUTUZUMAB [Suspect]
     Active Substance: OBINUTUZUMAB
     Indication: Non-Hodgkin^s lymphoma metastatic
     Dosage: START DATE OF MOST RECENT DOSE OF STUDY DRUG PRIOR TO AE 12/MAY/2023
     Route: 042
     Dates: start: 20230511
  4. OBINUTUZUMAB [Suspect]
     Active Substance: OBINUTUZUMAB
     Indication: Peritoneal carcinoma metastatic
     Dosage: ON 12/MAY/2023, MOST RECENT DOSE OF STUDY DRUG PRIOR TO AE/SAE?AS PER PROTOCOL, DAYS 1 AND 2 OF CYCL
     Route: 042
  5. TOCILIZUMAB [Suspect]
     Active Substance: TOCILIZUMAB
     Indication: Cytokine release syndrome
     Dosage: ON 18/MAY/2023, HE RECEIVED MOST RECENT DOSE OF TOCILIZUMAB PRIOR TO AE/SAE 480 MG
     Route: 042
     Dates: start: 20230518
  6. TOCILIZUMAB [Suspect]
     Active Substance: TOCILIZUMAB
     Route: 042
  7. CYTARABINE [Suspect]
     Active Substance: CYTARABINE
     Indication: Non-Hodgkin^s lymphoma metastatic
     Dosage: MOST RECENT DOSE OF STUDY DRUG PRIOR TO AE/SAE 04/MAY/2023, 70 MG
     Route: 037
     Dates: start: 20230329
  8. CYTARABINE [Suspect]
     Active Substance: CYTARABINE
     Indication: Peritoneal carcinoma metastatic
  9. HYDROCORTISONE [Suspect]
     Active Substance: HYDROCORTISONE
     Indication: Non-Hodgkin^s lymphoma metastatic
     Dosage: MOST RECENT DOSE OF STUDY DRUG PRIOR TO AE/SAE 04/MAY/2023, 30 MG
     Route: 037
     Dates: start: 20230329
  10. HYDROCORTISONE [Suspect]
     Active Substance: HYDROCORTISONE
     Indication: Peritoneal carcinoma metastatic
  11. GRANULOCYTE COLONY-STIMULATING FACTOR NOS [Suspect]
     Active Substance: GRANULOCYTE COLONY-STIMULATING FACTOR NOS
     Indication: Non-Hodgkin^s lymphoma metastatic
     Dosage: START DATE OF MOST RECENT DOSE 300 UG OF STUDY DRUG G-CSF PRIOR TO SAE/AE:28/MAY/2023
     Route: 042
     Dates: start: 20230519
  12. GRANULOCYTE COLONY-STIMULATING FACTOR NOS [Suspect]
     Active Substance: GRANULOCYTE COLONY-STIMULATING FACTOR NOS
     Indication: Peritoneal carcinoma metastatic
  13. PHOSTEN [Concomitant]
     Route: 042
     Dates: start: 20230416, end: 20230416
  14. PHOSTEN [Concomitant]
     Route: 042
     Dates: start: 20230419, end: 20230419
  15. PHOSTEN [Concomitant]
     Route: 042
     Dates: start: 20230518, end: 20230518
  16. PHOSTEN [Concomitant]
     Route: 042
     Dates: start: 20230506, end: 20230511
  17. PHOSTEN [Concomitant]
     Route: 042
     Dates: start: 20230521, end: 20230521
  18. PHOSTEN [Concomitant]
     Route: 042
     Dates: start: 20230530, end: 20230530
  19. PHOSTEN [Concomitant]
     Route: 042
     Dates: start: 20230604, end: 20230604
  20. NEXIUM [Concomitant]
     Active Substance: ESOMEPRAZOLE MAGNESIUM
     Indication: Hyperchlorhydria
     Route: 042
     Dates: start: 20230530, end: 20230602
  21. NEXIUM [Concomitant]
     Active Substance: ESOMEPRAZOLE MAGNESIUM
     Indication: Gastritis
     Route: 042
     Dates: start: 20230303, end: 20230502
  22. NEXIUM [Concomitant]
     Active Substance: ESOMEPRAZOLE MAGNESIUM
     Indication: Gastrooesophageal reflux disease
     Route: 042
     Dates: start: 20230504, end: 20230526
  23. NEXIUM [Concomitant]
     Active Substance: ESOMEPRAZOLE MAGNESIUM
     Route: 042
     Dates: start: 20230527, end: 20230529
  24. NEXIUM [Concomitant]
     Active Substance: ESOMEPRAZOLE MAGNESIUM
     Route: 042
     Dates: start: 20230604, end: 20230604
  25. NEXIUM [Concomitant]
     Active Substance: ESOMEPRAZOLE MAGNESIUM
     Route: 042
     Dates: start: 20230603, end: 20230603
  26. NEXIUM [Concomitant]
     Active Substance: ESOMEPRAZOLE MAGNESIUM
     Route: 042
     Dates: start: 20230315, end: 20230502
  27. CEFEPIME [Concomitant]
     Active Substance: CEFEPIME HYDROCHLORIDE
     Indication: Infection prophylaxis
     Route: 042
     Dates: start: 20230430, end: 20230507
  28. URSODIOL [Concomitant]
     Active Substance: URSODIOL
     Route: 048
     Dates: start: 20230508, end: 20230511
  29. URSODIOL [Concomitant]
     Active Substance: URSODIOL
     Route: 048
     Dates: start: 20230512, end: 20230512
  30. FUROSEMIDE [Concomitant]
     Active Substance: FUROSEMIDE
     Indication: Hypertension
     Route: 042
     Dates: start: 20230406, end: 20230510
  31. FUROSEMIDE [Concomitant]
     Active Substance: FUROSEMIDE
     Indication: Oedema
     Route: 042
     Dates: start: 20230303, end: 20230512
  32. FUROSEMIDE [Concomitant]
     Active Substance: FUROSEMIDE
     Indication: Chronic kidney disease
     Route: 042
     Dates: start: 20230511, end: 20230511
  33. FUROSEMIDE [Concomitant]
     Active Substance: FUROSEMIDE
     Route: 042
     Dates: start: 20230509, end: 20230509
  34. FUROSEMIDE [Concomitant]
     Active Substance: FUROSEMIDE
     Route: 042
     Dates: start: 20230528, end: 20230528
  35. FUROSEMIDE [Concomitant]
     Active Substance: FUROSEMIDE
     Route: 042
     Dates: start: 20230319, end: 20230512
  36. KETOROLAC [Concomitant]
     Active Substance: KETOROLAC TROMETHAMINE
     Indication: Cancer pain
     Route: 042
     Dates: start: 20230511, end: 20230511
  37. KETOROLAC [Concomitant]
     Active Substance: KETOROLAC TROMETHAMINE
     Route: 042
     Dates: start: 20230511, end: 20230511
  38. RASBURICASE [Concomitant]
     Active Substance: RASBURICASE
     Indication: Tumour lysis syndrome
     Route: 042
     Dates: start: 20230509
  39. RASBURICASE [Concomitant]
     Active Substance: RASBURICASE
     Route: 042
     Dates: start: 20230429, end: 20230429
  40. RASBURICASE [Concomitant]
     Active Substance: RASBURICASE
     Route: 042
     Dates: start: 20230425, end: 20230425
  41. RASBURICASE [Concomitant]
     Active Substance: RASBURICASE
     Route: 042
     Dates: start: 20230512, end: 20230512
  42. RASBURICASE [Concomitant]
     Active Substance: RASBURICASE
     Route: 042
     Dates: start: 20230519, end: 20230519
  43. MIDAZOLAM [Concomitant]
     Active Substance: MIDAZOLAM
     Route: 042
     Dates: start: 20230306, end: 20230526
  44. MIDAZOLAM [Concomitant]
     Active Substance: MIDAZOLAM
     Route: 042
     Dates: start: 20230306, end: 20230526
  45. MIDAZOLAM [Concomitant]
     Active Substance: MIDAZOLAM
     Route: 042
     Dates: start: 20230529, end: 20230529
  46. MIDAZOLAM [Concomitant]
     Active Substance: MIDAZOLAM
     Route: 042
     Dates: start: 20230531, end: 20230531
  47. MIDAZOLAM [Concomitant]
     Active Substance: MIDAZOLAM
     Route: 042
     Dates: start: 20230530, end: 20230530
  48. MIDAZOLAM [Concomitant]
     Active Substance: MIDAZOLAM
     Route: 042
     Dates: start: 20230603, end: 20230603
  49. MIDAZOLAM [Concomitant]
     Active Substance: MIDAZOLAM
     Route: 042
     Dates: start: 20230604, end: 20230604
  50. NICARDIPINE [Concomitant]
     Active Substance: NICARDIPINE
     Indication: Hypertension
     Route: 042
     Dates: start: 20230406, end: 20230512
  51. METHYLPREDNISOLONE SODIUM SUCCINATE [Concomitant]
     Active Substance: METHYLPREDNISOLONE SODIUM SUCCINATE
     Indication: Neoplasm malignant
     Route: 042
     Dates: start: 20230510, end: 20230510
  52. METHYLPREDNISOLONE SODIUM SUCCINATE [Concomitant]
     Active Substance: METHYLPREDNISOLONE SODIUM SUCCINATE
     Route: 042
     Dates: start: 20230509, end: 20230509
  53. METHYLPREDNISOLONE SODIUM SUCCINATE [Concomitant]
     Active Substance: METHYLPREDNISOLONE SODIUM SUCCINATE
     Route: 042
     Dates: start: 20230518
  54. METHYLPREDNISOLONE SODIUM SUCCINATE [Concomitant]
     Active Substance: METHYLPREDNISOLONE SODIUM SUCCINATE
     Dates: start: 20230329, end: 20230427
  55. METHYLPREDNISOLONE SODIUM SUCCINATE [Concomitant]
     Active Substance: METHYLPREDNISOLONE SODIUM SUCCINATE
     Dates: start: 20230329, end: 20230428
  56. METHYLPREDNISOLONE SODIUM SUCCINATE [Concomitant]
     Active Substance: METHYLPREDNISOLONE SODIUM SUCCINATE
     Route: 042
     Dates: start: 20230426, end: 20230426
  57. METHYLPREDNISOLONE SODIUM SUCCINATE [Concomitant]
     Active Substance: METHYLPREDNISOLONE SODIUM SUCCINATE
     Route: 042
     Dates: start: 20230427, end: 20230505
  58. METHYLPREDNISOLONE SODIUM SUCCINATE [Concomitant]
     Active Substance: METHYLPREDNISOLONE SODIUM SUCCINATE
     Route: 042
     Dates: start: 20230508, end: 20230508
  59. METHYLPREDNISOLONE SODIUM SUCCINATE [Concomitant]
     Active Substance: METHYLPREDNISOLONE SODIUM SUCCINATE
     Route: 042
     Dates: start: 20230506, end: 20230506
  60. METHYLPREDNISOLONE SODIUM SUCCINATE [Concomitant]
     Active Substance: METHYLPREDNISOLONE SODIUM SUCCINATE
     Route: 042
     Dates: start: 20230329, end: 20230423
  61. METHYLPREDNISOLONE SODIUM SUCCINATE [Concomitant]
     Active Substance: METHYLPREDNISOLONE SODIUM SUCCINATE
     Route: 042
     Dates: start: 20230424, end: 20230424
  62. VANCOMYCIN [Concomitant]
     Active Substance: VANCOMYCIN
     Indication: Febrile neutropenia
     Route: 042
     Dates: start: 20230513, end: 20230513
  63. VANCOMYCIN [Concomitant]
     Active Substance: VANCOMYCIN
     Indication: Infusion related reaction
     Route: 042
     Dates: start: 20230514, end: 20230515
  64. VANCOMYCIN [Concomitant]
     Active Substance: VANCOMYCIN
     Route: 042
     Dates: start: 20230516, end: 20230517
  65. VANCOMYCIN [Concomitant]
     Active Substance: VANCOMYCIN
     Route: 042
     Dates: start: 20230518, end: 20230518
  66. VANCOMYCIN [Concomitant]
     Active Substance: VANCOMYCIN
     Route: 042
     Dates: start: 20230522, end: 20230522
  67. CASPOFUNGIN [Concomitant]
     Active Substance: CASPOFUNGIN
     Indication: Infusion related reaction
     Route: 042
     Dates: start: 20230513, end: 20230514
  68. CASPOFUNGIN [Concomitant]
     Active Substance: CASPOFUNGIN
     Indication: Febrile neutropenia
     Route: 042
     Dates: start: 20230514, end: 20230514
  69. CASPOFUNGIN [Concomitant]
     Active Substance: CASPOFUNGIN
     Route: 042
     Dates: start: 20230515, end: 20230603
  70. MEROPENEM [Concomitant]
     Active Substance: MEROPENEM
     Indication: Febrile neutropenia
     Route: 042
     Dates: start: 20230513, end: 20230513
  71. MEROPENEM [Concomitant]
     Active Substance: MEROPENEM
     Indication: Infusion related reaction
     Route: 042
     Dates: start: 20230516, end: 20230516
  72. MEROPENEM [Concomitant]
     Active Substance: MEROPENEM
     Route: 042
     Dates: start: 20230513, end: 20230515
  73. MEROPENEM [Concomitant]
     Active Substance: MEROPENEM
     Route: 042
     Dates: start: 20230514, end: 20230516
  74. MEROPENEM [Concomitant]
     Active Substance: MEROPENEM
     Route: 042
     Dates: start: 20230517, end: 20230517
  75. MEROPENEM [Concomitant]
     Active Substance: MEROPENEM
     Route: 042
     Dates: start: 20230519, end: 20230522
  76. MEROPENEM [Concomitant]
     Active Substance: MEROPENEM
     Route: 042
     Dates: start: 20230523, end: 20230526
  77. NOREPINEPHRINE [Concomitant]
     Active Substance: NOREPINEPHRINE
     Indication: Hypotension
     Route: 042
     Dates: start: 20230513, end: 20230513
  78. FENTANYL [Concomitant]
     Active Substance: FENTANYL\FENTANYL CITRATE
     Indication: Cancer pain
     Route: 042
     Dates: start: 20230514, end: 20230514
  79. FENTANYL [Concomitant]
     Active Substance: FENTANYL\FENTANYL CITRATE
     Indication: Pain
     Route: 042
     Dates: start: 20230517, end: 20230517
  80. QUETIAPINE [Concomitant]
     Active Substance: QUETIAPINE
     Route: 042
     Dates: start: 20230516, end: 20230516
  81. SODIUM BICARBONATE [Concomitant]
     Active Substance: SODIUM BICARBONATE
     Route: 042
     Dates: start: 20230517
  82. LORAZEPAM [Concomitant]
     Active Substance: LORAZEPAM
     Indication: Anxiety
     Route: 042
     Dates: start: 20230412, end: 20230416
  83. LORAZEPAM [Concomitant]
     Active Substance: LORAZEPAM
     Route: 042
     Dates: start: 20230413, end: 20230417
  84. OXYGEN [Concomitant]
     Active Substance: OXYGEN
     Indication: Hypoxia
     Dates: start: 20230526
  85. OXYGEN [Concomitant]
     Active Substance: OXYGEN
     Dates: start: 20230522
  86. OXYGEN [Concomitant]
     Active Substance: OXYGEN
     Dates: start: 20230522
  87. ENOXAPARIN SODIUM [Concomitant]
     Active Substance: ENOXAPARIN SODIUM
     Indication: Deep vein thrombosis
     Route: 042
     Dates: start: 20230505, end: 20230506
  88. ENOXAPARIN SODIUM [Concomitant]
     Active Substance: ENOXAPARIN SODIUM
     Route: 042
     Dates: start: 20230507, end: 20230507
  89. ENOXAPARIN SODIUM [Concomitant]
     Active Substance: ENOXAPARIN SODIUM
     Route: 042
     Dates: start: 20230511, end: 20230511
  90. ENOXAPARIN SODIUM [Concomitant]
     Active Substance: ENOXAPARIN SODIUM
     Route: 042
     Dates: start: 20230513, end: 20230513
  91. ENOXAPARIN SODIUM [Concomitant]
     Active Substance: ENOXAPARIN SODIUM
     Route: 042
     Dates: start: 20230503, end: 20230504
  92. VITAMINS [Concomitant]
     Active Substance: VITAMINS
     Route: 042
     Dates: start: 20230430, end: 20230508
  93. VITAMINS [Concomitant]
     Active Substance: VITAMINS
     Route: 042
     Dates: start: 20230510, end: 20230510
  94. KEPPRA [Concomitant]
     Active Substance: LEVETIRACETAM
     Indication: Seizure prophylaxis
     Route: 048
     Dates: start: 20230523, end: 20230523
  95. KEPPRA [Concomitant]
     Active Substance: LEVETIRACETAM
     Route: 042
     Dates: start: 20230529, end: 20230529
  96. KEPPRA [Concomitant]
     Active Substance: LEVETIRACETAM
     Route: 042
     Dates: start: 20230530, end: 20230601
  97. KEPPRA [Concomitant]
     Active Substance: LEVETIRACETAM
     Route: 042
     Dates: start: 20230603, end: 20230603
  98. KEPPRA [Concomitant]
     Active Substance: LEVETIRACETAM
     Route: 042
     Dates: start: 20230604, end: 20230604
  99. KEPPRA [Concomitant]
     Active Substance: LEVETIRACETAM
     Route: 042
     Dates: start: 20230602, end: 20230602
  100. KEPPRA [Concomitant]
     Active Substance: LEVETIRACETAM
     Route: 048
     Dates: start: 20230524, end: 20230527
  101. KEPPRA [Concomitant]
     Active Substance: LEVETIRACETAM
     Route: 048
     Dates: start: 20230528, end: 20230528
  102. FAMOTIDINE [Concomitant]
     Active Substance: FAMOTIDINE
     Indication: Gastritis
     Route: 042
     Dates: start: 20230329, end: 20230426
  103. FAMOTIDINE [Concomitant]
     Active Substance: FAMOTIDINE
     Indication: Gastrooesophageal reflux disease
  104. LENOGRASTIM [Concomitant]
     Active Substance: LENOGRASTIM
     Route: 042
     Dates: start: 20230505, end: 20230507
  105. LENOGRASTIM [Concomitant]
     Active Substance: LENOGRASTIM
     Route: 042
     Dates: start: 20230502, end: 20230503
  106. LENOGRASTIM [Concomitant]
     Active Substance: LENOGRASTIM
     Dates: start: 20230406, end: 20230413
  107. MAXIPIME [Concomitant]
     Active Substance: CEFEPIME HYDROCHLORIDE
     Indication: Infusion related reaction
     Route: 042
     Dates: start: 20230319, end: 20230418
  108. MAXIPIME [Concomitant]
     Active Substance: CEFEPIME HYDROCHLORIDE
     Route: 042
     Dates: start: 20230513, end: 20230513
  109. ACETYLCYSTEINE [Concomitant]
     Active Substance: ACETYLCYSTEINE
     Route: 042
     Dates: start: 20230424, end: 20230424
  110. ACETYLCYSTEINE [Concomitant]
     Active Substance: ACETYLCYSTEINE
     Route: 042
     Dates: start: 20230425, end: 20230425
  111. ACETYLCYSTEINE [Concomitant]
     Active Substance: ACETYLCYSTEINE
     Route: 042
     Dates: start: 20230518, end: 20230518
  112. ACETYLCYSTEINE [Concomitant]
     Active Substance: ACETYLCYSTEINE
     Route: 042
     Dates: start: 20230531, end: 20230531
  113. ORAMEDY [Concomitant]
     Active Substance: TRIAMCINOLONE ACETONIDE
     Indication: Prophylaxis
     Dosage: 1 OTHER
     Route: 061
     Dates: start: 20230327, end: 20230603
  114. FURTMAN [Concomitant]
     Route: 042
     Dates: start: 20230406, end: 20230421
  115. KETAMINE HYDROCHLORIDE [Concomitant]
     Active Substance: KETAMINE HYDROCHLORIDE
     Route: 042
     Dates: start: 20230306, end: 20230531
  116. KETAMINE HYDROCHLORIDE [Concomitant]
     Active Substance: KETAMINE HYDROCHLORIDE
     Route: 042
     Dates: start: 20230331, end: 20230331
  117. KETAMINE HYDROCHLORIDE [Concomitant]
     Active Substance: KETAMINE HYDROCHLORIDE
     Route: 042
     Dates: start: 20230508, end: 20230508
  118. KETAMINE HYDROCHLORIDE [Concomitant]
     Active Substance: KETAMINE HYDROCHLORIDE
     Route: 042
     Dates: start: 20230504, end: 20230504
  119. KETAMINE HYDROCHLORIDE [Concomitant]
     Active Substance: KETAMINE HYDROCHLORIDE
     Route: 042
     Dates: start: 20230427, end: 20230427
  120. KETAMINE HYDROCHLORIDE [Concomitant]
     Active Substance: KETAMINE HYDROCHLORIDE
     Route: 042
     Dates: start: 20230425, end: 20230425
  121. PENTAMIDINE ISETHIONATE [Concomitant]
     Active Substance: PENTAMIDINE ISETHIONATE
     Indication: Infection prophylaxis
     Route: 055
     Dates: start: 20230421, end: 20230421
  122. PENTAMIDINE ISETHIONATE [Concomitant]
     Active Substance: PENTAMIDINE ISETHIONATE
     Route: 055
     Dates: start: 20230521, end: 20230521
  123. ZYPREXA ZYDIS [Concomitant]
     Active Substance: OLANZAPINE
     Indication: Delirium
     Route: 048
     Dates: start: 20230421, end: 20230421
  124. ZYPREXA ZYDIS [Concomitant]
     Active Substance: OLANZAPINE
     Route: 048
     Dates: start: 20230422, end: 20230424
  125. SMOFLIPID [Concomitant]
     Active Substance: FISH OIL\MEDIUM-CHAIN TRIGLYCERIDES\OLIVE OIL\SOYBEAN OIL
     Route: 042
     Dates: start: 20230422, end: 20230423
  126. ALOXI [Concomitant]
     Active Substance: PALONOSETRON HYDROCHLORIDE
     Route: 042
     Dates: start: 20230427, end: 20230427
  127. EMEND [Concomitant]
     Active Substance: APREPITANT
     Route: 042
     Dates: start: 20230427, end: 20230427
  128. EMEND [Concomitant]
     Active Substance: APREPITANT
     Route: 042
     Dates: start: 20230428, end: 20230428
  129. MECKOOL [Concomitant]
     Indication: Prophylaxis of nausea and vomiting
     Route: 042
     Dates: start: 20230429, end: 20230429
  130. MECKOOL [Concomitant]
     Indication: Prophylaxis of nausea and vomiting
     Route: 042
     Dates: start: 20230430, end: 20230430
  131. MEROPENEM [Concomitant]
     Active Substance: MEROPENEM
     Indication: Febrile neutropenia
     Route: 042
     Dates: start: 20230527, end: 20230529
  132. MEROPENEM [Concomitant]
     Active Substance: MEROPENEM
     Route: 042
     Dates: start: 20230530, end: 20230531
  133. TAZOPERAN [Concomitant]
     Indication: Febrile neutropenia
     Route: 042
     Dates: start: 20230518, end: 20230518
  134. LEVOFLOXACIN [Concomitant]
     Active Substance: LEVOFLOXACIN
     Indication: Febrile neutropenia
     Route: 042
     Dates: start: 20230522, end: 20230522
  135. LEVOFLOXACIN [Concomitant]
     Active Substance: LEVOFLOXACIN
     Route: 042
     Dates: start: 20230526, end: 20230526
  136. LEVOFLOXACIN [Concomitant]
     Active Substance: LEVOFLOXACIN
     Route: 042
     Dates: start: 20230524, end: 20230524
  137. LEVOFLOXACIN [Concomitant]
     Active Substance: LEVOFLOXACIN
     Route: 042
     Dates: start: 20230528, end: 20230528
  138. LEVOFLOXACIN [Concomitant]
     Active Substance: LEVOFLOXACIN
     Route: 042
     Dates: start: 20230530, end: 20230603
  139. VORICONAZOLE [Concomitant]
     Active Substance: VORICONAZOLE
     Indication: Febrile neutropenia
     Route: 042
     Dates: start: 20230519, end: 20230519
  140. VORICONAZOLE [Concomitant]
     Active Substance: VORICONAZOLE
     Route: 042
     Dates: start: 20230520, end: 20230523
  141. VORICONAZOLE [Concomitant]
     Active Substance: VORICONAZOLE
     Route: 042
     Dates: start: 20230524, end: 20230524
  142. VORICONAZOLE [Concomitant]
     Active Substance: VORICONAZOLE
     Route: 042
     Dates: start: 20230525, end: 20230526
  143. VORICONAZOLE [Concomitant]
     Active Substance: VORICONAZOLE
     Route: 042
     Dates: start: 20230530, end: 20230601
  144. VORICONAZOLE [Concomitant]
     Active Substance: VORICONAZOLE
     Route: 042
     Dates: start: 20230602, end: 20230602
  145. VORICONAZOLE [Concomitant]
     Active Substance: VORICONAZOLE
     Route: 042
     Dates: start: 20230603, end: 20230603
  146. VORICONAZOLE [Concomitant]
     Active Substance: VORICONAZOLE
     Route: 042
     Dates: start: 20230604, end: 20230604
  147. VORICONAZOLE [Concomitant]
     Active Substance: VORICONAZOLE
     Route: 042
     Dates: start: 20230527, end: 20230529
  148. DEXAMETHASONE [Concomitant]
     Active Substance: DEXAMETHASONE
     Route: 042
     Dates: start: 20230511, end: 20230511
  149. DEXAMETHASONE [Concomitant]
     Active Substance: DEXAMETHASONE
     Route: 042
     Dates: start: 20230512, end: 20230512
  150. DEXAMETHASONE [Concomitant]
     Active Substance: DEXAMETHASONE
     Route: 042
     Dates: start: 20230518, end: 20230518
  151. DEXAMETHASONE [Concomitant]
     Active Substance: DEXAMETHASONE
     Route: 042
     Dates: start: 20230526, end: 20230526
  152. DEXAMETHASONE [Concomitant]
     Active Substance: DEXAMETHASONE
     Route: 042
     Dates: start: 20230511, end: 20230512
  153. DEXAMETHASONE [Concomitant]
     Active Substance: DEXAMETHASONE
     Route: 042
     Dates: start: 20230529, end: 20230529
  154. DEXAMETHASONE [Concomitant]
     Active Substance: DEXAMETHASONE
     Route: 042
     Dates: start: 20230530, end: 20230601
  155. DEXAMETHASONE [Concomitant]
     Active Substance: DEXAMETHASONE
     Route: 042
     Dates: start: 20230602
  156. TEICOPLANIN [Concomitant]
     Active Substance: TEICOPLANIN
     Indication: Febrile neutropenia
     Route: 042
     Dates: start: 20230522, end: 20230522
  157. TEICOPLANIN [Concomitant]
     Active Substance: TEICOPLANIN
     Route: 042
     Dates: start: 20230525, end: 20230525
  158. TEICOPLANIN [Concomitant]
     Active Substance: TEICOPLANIN
     Route: 042
     Dates: start: 20230527, end: 20230529
  159. TEICOPLANIN [Concomitant]
     Active Substance: TEICOPLANIN
     Route: 042
     Dates: start: 20230530, end: 20230601
  160. ACYCLOVIR [Concomitant]
     Active Substance: ACYCLOVIR
     Indication: Febrile neutropenia
     Route: 042
     Dates: start: 20230530, end: 20230602
  161. ACYCLOVIR [Concomitant]
     Active Substance: ACYCLOVIR
     Route: 042
     Dates: start: 20230601, end: 20230602
  162. AMIKACIN [Concomitant]
     Active Substance: AMIKACIN
     Indication: Infection prophylaxis
     Route: 042
     Dates: start: 20230530, end: 20230531
  163. AMIKACIN [Concomitant]
     Active Substance: AMIKACIN
     Route: 042
     Dates: start: 20230601, end: 20230602
  164. AMIKACIN [Concomitant]
     Active Substance: AMIKACIN
     Route: 042
     Dates: start: 20230603, end: 20230603
  165. POSPENEM [Concomitant]
     Indication: Febrile neutropenia
     Route: 042
     Dates: start: 20230601, end: 20230601
  166. POSPENEM [Concomitant]
     Route: 042
     Dates: start: 20230602, end: 20230602
  167. POSPENEM [Concomitant]
     Route: 042
     Dates: start: 20230603, end: 20230603
  168. POSPENEM [Concomitant]
     Route: 042
     Dates: start: 20230604, end: 20230604
  169. POSPENEM [Concomitant]
     Route: 042
     Dates: start: 20230530, end: 20230601
  170. POSPENEM [Concomitant]
     Route: 042
     Dates: start: 20230527, end: 20230529
  171. METRONIDAZOLE [Concomitant]
     Active Substance: METRONIDAZOLE
     Indication: Febrile neutropenia
     Route: 042
     Dates: start: 20230523, end: 20230529
  172. METRONIDAZOLE [Concomitant]
     Active Substance: METRONIDAZOLE
     Route: 042
     Dates: start: 20230529, end: 20230529
  173. ACETYLCYSTEINE [Concomitant]
     Active Substance: ACETYLCYSTEINE
     Route: 042
     Dates: start: 20230519, end: 20230520
  174. ACETYLCYSTEINE [Concomitant]
     Active Substance: ACETYLCYSTEINE
     Route: 042
     Dates: start: 20230521, end: 20230522
  175. ACETYLCYSTEINE [Concomitant]
     Active Substance: ACETYLCYSTEINE
     Route: 042
     Dates: start: 20230528, end: 20230530
  176. BOSOMI [Concomitant]
     Indication: Skin ulcer
     Route: 062
     Dates: start: 20230513, end: 20230604
  177. SYNTHROID [Concomitant]
     Active Substance: LEVOTHYROXINE SODIUM
     Route: 048
     Dates: start: 20230517, end: 20230604
  178. FENTANYL CITRATE [Concomitant]
     Active Substance: FENTANYL CITRATE
     Indication: Cancer pain
     Route: 048
     Dates: start: 20230525, end: 20230525
  179. FENTANYL CITRATE [Concomitant]
     Active Substance: FENTANYL CITRATE
     Route: 042
     Dates: start: 20230603, end: 20230603
  180. FENTANYL CITRATE [Concomitant]
     Active Substance: FENTANYL CITRATE
     Route: 042
     Dates: start: 20230604, end: 20230604
  181. SYNACTHENE [Concomitant]
     Route: 042
     Dates: start: 20230516, end: 20230516
  182. URSODIOL [Concomitant]
     Active Substance: URSODIOL
     Route: 048
     Dates: start: 20230512, end: 20230512
  183. URSODIOL [Concomitant]
     Active Substance: URSODIOL
     Route: 048
     Dates: start: 20230513, end: 20230513
  184. URSODIOL [Concomitant]
     Active Substance: URSODIOL
     Route: 048
     Dates: start: 20230516, end: 20230516
  185. URSODIOL [Concomitant]
     Active Substance: URSODIOL
     Route: 048
     Dates: start: 20230517, end: 20230517
  186. URSODIOL [Concomitant]
     Active Substance: URSODIOL
     Route: 048
     Dates: start: 20230519, end: 20230519
  187. URSODIOL [Concomitant]
     Active Substance: URSODIOL
     Route: 048
     Dates: start: 20230520, end: 20230521
  188. URSODIOL [Concomitant]
     Active Substance: URSODIOL
     Route: 048
     Dates: start: 20230522, end: 20230522
  189. URSODIOL [Concomitant]
     Active Substance: URSODIOL
     Route: 048
     Dates: start: 20230523, end: 20230523
  190. URSODIOL [Concomitant]
     Active Substance: URSODIOL
     Route: 048
     Dates: start: 20230508, end: 20230511
  191. URSODIOL [Concomitant]
     Active Substance: URSODIOL
     Route: 048
     Dates: start: 20230602, end: 20230602
  192. URSODIOL [Concomitant]
     Active Substance: URSODIOL
     Route: 048
     Dates: start: 20230603, end: 20230603
  193. URSODIOL [Concomitant]
     Active Substance: URSODIOL
     Route: 048
     Dates: start: 20230604, end: 20230604
  194. URSODIOL [Concomitant]
     Active Substance: URSODIOL
     Dates: start: 20230517, end: 20230518
  195. SEROQUEL [Concomitant]
     Active Substance: QUETIAPINE FUMARATE
     Indication: Delirium
     Route: 042
     Dates: start: 20230516, end: 20230516
  196. PHYTONADIONE [Concomitant]
     Active Substance: PHYTONADIONE
     Route: 042
     Dates: start: 20230519, end: 20230519
  197. ESROBAN [Concomitant]
     Route: 061
     Dates: start: 20230526, end: 20230603
  198. HYALURON [Concomitant]
     Route: 061
     Dates: start: 20230529, end: 20230604
  199. DURATEARS (SOUTH KOREA) [Concomitant]
     Route: 061
     Dates: start: 20230530, end: 20230604
  200. LEVOFLOXACIN [Concomitant]
     Active Substance: LEVOFLOXACIN
     Route: 047
     Dates: start: 20230530, end: 20230530
  201. LEVOFLOXACIN [Concomitant]
     Active Substance: LEVOFLOXACIN
     Route: 047
     Dates: start: 20230531, end: 20230602
  202. LEVOFLOXACIN [Concomitant]
     Active Substance: LEVOFLOXACIN
     Route: 047
     Dates: start: 20230604, end: 20230604
  203. CHLORPHENIRAMINE MALEATE [Concomitant]
     Active Substance: CHLORPHENIRAMINE MALEATE
     Route: 042
     Dates: start: 20230511, end: 20230511
  204. CHLORPHENIRAMINE MALEATE [Concomitant]
     Active Substance: CHLORPHENIRAMINE MALEATE
     Route: 042
     Dates: start: 20230518, end: 20230518
  205. ALBUMIN HUMAN [Concomitant]
     Active Substance: ALBUMIN HUMAN
     Route: 042
     Dates: start: 20230517, end: 20230519
  206. ALBUMIN HUMAN [Concomitant]
     Active Substance: ALBUMIN HUMAN
     Route: 042
     Dates: start: 20230519, end: 20230521
  207. ALBUMIN HUMAN [Concomitant]
     Active Substance: ALBUMIN HUMAN
     Route: 042
     Dates: start: 20230521, end: 20230523
  208. ELSTEIN [Concomitant]
     Route: 048
     Dates: start: 20230523, end: 20230527
  209. LASIX [Concomitant]
     Active Substance: FUROSEMIDE
     Indication: Acute kidney injury
     Route: 042
     Dates: start: 20230319, end: 20230508
  210. LASIX [Concomitant]
     Active Substance: FUROSEMIDE
     Indication: Acute kidney injury
     Route: 042
     Dates: start: 20230515, end: 20230515
  211. LASIX [Concomitant]
     Active Substance: FUROSEMIDE
     Indication: Renal injury
     Route: 042
     Dates: start: 20230510, end: 20230510
  212. LASIX [Concomitant]
     Active Substance: FUROSEMIDE
     Route: 042
     Dates: start: 20230404, end: 20230512
  213. LASIX [Concomitant]
     Active Substance: FUROSEMIDE
     Route: 042
     Dates: start: 20230319, end: 20230512
  214. NICARDIPINE HYDROCHLORIDE [Concomitant]
     Active Substance: NICARDIPINE HYDROCHLORIDE
     Indication: Hypertension
     Route: 042
     Dates: start: 20230406, end: 20230511
  215. METHYLPREDNISOLONE SODIUM SUCCINATE [Concomitant]
     Active Substance: METHYLPREDNISOLONE SODIUM SUCCINATE
     Indication: Neoplasm malignant
     Route: 042
     Dates: start: 20230510, end: 20230510
  216. METHYLPREDNISOLONE SODIUM SUCCINATE [Concomitant]
     Active Substance: METHYLPREDNISOLONE SODIUM SUCCINATE
     Route: 042
     Dates: start: 20230509, end: 20230509
  217. METHYLPREDNISOLONE SODIUM SUCCINATE [Concomitant]
     Active Substance: METHYLPREDNISOLONE SODIUM SUCCINATE
     Route: 042
     Dates: start: 20230424, end: 20230425
  218. METHYLPREDNISOLONE SODIUM SUCCINATE [Concomitant]
     Active Substance: METHYLPREDNISOLONE SODIUM SUCCINATE
     Route: 042
     Dates: start: 20230427, end: 20230505
  219. METHYLPREDNISOLONE SODIUM SUCCINATE [Concomitant]
     Active Substance: METHYLPREDNISOLONE SODIUM SUCCINATE
     Route: 042
     Dates: start: 20230506, end: 20230506
  220. METHYLPREDNISOLONE SODIUM SUCCINATE [Concomitant]
     Active Substance: METHYLPREDNISOLONE SODIUM SUCCINATE
     Route: 042
     Dates: start: 20230508, end: 20230509
  221. CANCIDAS [Concomitant]
     Active Substance: CASPOFUNGIN ACETATE
     Indication: Infusion related reaction
     Route: 042
     Dates: start: 20230513, end: 20230514
  222. CANCIDAS [Concomitant]
     Active Substance: CASPOFUNGIN ACETATE
     Indication: Febrile neutropenia
     Route: 042
     Dates: start: 20230518, end: 20230603
  223. CANCIDAS [Concomitant]
     Active Substance: CASPOFUNGIN ACETATE
     Route: 042
     Dates: start: 20230515, end: 20230517
  224. ZOYLEX [ACICLOVIR] [Concomitant]
     Indication: Febrile neutropenia
     Route: 042
     Dates: start: 20230530, end: 20230602
  225. SODIUM BENZOATE [Concomitant]
     Active Substance: SODIUM BENZOATE
     Indication: Hyperammonaemia
     Route: 042
     Dates: start: 20230519, end: 20230519
  226. AMBROXOL [Concomitant]
     Active Substance: AMBROXOL
     Route: 042
     Dates: start: 20230523, end: 20230603
  227. AMBROXOL [Concomitant]
     Active Substance: AMBROXOL
     Dates: start: 20230604, end: 20230604
  228. VITAMIN K1 [Concomitant]
     Active Substance: PHYTONADIONE
     Route: 042
     Dates: start: 20230603, end: 20230603
  229. POTASSIUM CHLORIDE [Concomitant]
     Active Substance: POTASSIUM CHLORIDE
     Route: 042
     Dates: start: 20230604, end: 20230604
  230. PRIMACOR [Concomitant]
     Active Substance: MILRINONE LACTATE
     Indication: Hypotension
     Route: 042
     Dates: start: 20230602, end: 20230602
  231. PRIMACOR [Concomitant]
     Active Substance: MILRINONE LACTATE
     Route: 042
     Dates: start: 20230530, end: 20230530
  232. PRIMACOR [Concomitant]
     Active Substance: MILRINONE LACTATE
     Route: 042
     Dates: start: 20230531, end: 20230531
  233. PRIMACOR [Concomitant]
     Active Substance: MILRINONE LACTATE
     Route: 042
     Dates: start: 20230601, end: 20230601
  234. PRIMACOR [Concomitant]
     Active Substance: MILRINONE LACTATE
     Route: 042
     Dates: start: 20230603, end: 20230603
  235. PRIMACOR [Concomitant]
     Active Substance: MILRINONE LACTATE
     Route: 042
     Dates: start: 20230604, end: 20230604
  236. PRIMACOR [Concomitant]
     Active Substance: MILRINONE LACTATE
     Route: 042
     Dates: start: 20230605, end: 20230605
  237. DEXTROSE [Concomitant]
     Active Substance: DEXTROSE\DEXTROSE MONOHYDRATE
     Indication: Hypoglycaemia
     Route: 042
     Dates: start: 20230529, end: 20230529
  238. MESNA [Concomitant]
     Active Substance: MESNA
     Indication: Neoplasm malignant
     Dates: start: 20230428, end: 20230501

REACTIONS (7)
  - Cytokine release syndrome [Recovered/Resolved]
  - Seizure [Recovered/Resolved]
  - Febrile neutropenia [Not Recovered/Not Resolved]
  - Tumour lysis syndrome [Recovered/Resolved]
  - Dyspnoea [Not Recovered/Not Resolved]
  - Acute kidney injury [Not Recovered/Not Resolved]
  - Depressed level of consciousness [Not Recovered/Not Resolved]

NARRATIVE: CASE EVENT DATE: 20230512
